FAERS Safety Report 4852809-8 (Version None)
Quarter: 2005Q4

REPORT INFORMATION
  Report Type: 
  Country: None (occurrence: None)
  Receive Date: 20051212
  Receipt Date: 20051212
  Transmission Date: 20060501
  Serious: Yes (Hospitalization)
  Sender: FDA-Public Use
  Company Number: None

PATIENT
  Age: 37 Year
  Sex: Female
  Weight: 56.246 kg

DRUGS (3)
  1. BACTRIM DS [Suspect]
     Indication: DERMATITIS ATOPIC
     Dosage: 1 TABLET BID PO
     Route: 048
     Dates: start: 20031122, end: 20031202
  2. ITRACONAZOLE [Suspect]
     Indication: DERMATITIS ATOPIC
     Dosage: 100 MG BID PO
     Route: 048
     Dates: start: 20031122, end: 20031202
  3. DOXEPIN HCL [Concomitant]

REACTIONS (12)
  - CHILLS [None]
  - CONDITION AGGRAVATED [None]
  - COUGH [None]
  - DERMATITIS [None]
  - DYSPHONIA [None]
  - HEADACHE [None]
  - LIVER FUNCTION TEST ABNORMAL [None]
  - NASAL CONGESTION [None]
  - NEUTROPENIA [None]
  - PYREXIA [None]
  - THROMBOCYTOPENIA [None]
  - VOMITING [None]
